FAERS Safety Report 16547537 (Version 1)
Quarter: 2019Q3

REPORT INFORMATION
  Report Type: Spontaneous
  Country: US (occurrence: US)
  Receive Date: 20190709
  Receipt Date: 20190709
  Transmission Date: 20191004
  Serious: Yes (Other)
  Sender: FDA-Public Use
  Company Number: US-SA-2017SA251969

PATIENT
  Age: 56 Year
  Sex: Female

DRUGS (19)
  1. LODINE [Concomitant]
     Active Substance: ETODOLAC
     Dosage: UNK
     Route: 065
     Dates: start: 201407, end: 201409
  2. TRIDERM [TRIAMCINOLONE ACETONIDE] [Concomitant]
     Route: 065
  3. ATIVAN [Concomitant]
     Active Substance: LORAZEPAM
     Route: 065
  4. ULTRAM [Concomitant]
     Active Substance: TRAMADOL HYDROCHLORIDE
     Dosage: UNK
     Route: 065
     Dates: start: 201407, end: 201408
  5. COMPAZINE [PROCHLORPERAZINE EDISYLATE] [Concomitant]
     Active Substance: PROCHLORPERAZINE EDISYLATE
  6. FLEXERIL [Concomitant]
     Active Substance: CYCLOBENZAPRINE HYDROCHLORIDE
     Dosage: UNK
     Route: 065
     Dates: start: 201407, end: 201410
  7. GLUCOSAMINE SULFATE [Concomitant]
     Active Substance: GLUCOSAMINE SULFATE
     Route: 065
  8. EFFEXOR [Concomitant]
     Active Substance: VENLAFAXINE HYDROCHLORIDE
     Dosage: UNK
     Route: 065
  9. COLACE [Concomitant]
     Active Substance: DOCUSATE SODIUM
  10. HYDROCORTISONE. [Concomitant]
     Active Substance: HYDROCORTISONE
     Route: 065
  11. NEOSAR [Concomitant]
     Active Substance: CYCLOPHOSPHAMIDE
  12. ASPIRIN [ACETYLSALICYLIC ACID] [Concomitant]
     Active Substance: ASPIRIN
  13. ZOFRAN [Concomitant]
     Active Substance: ONDANSETRON HYDROCHLORIDE
  14. TAXOTERE [Suspect]
     Active Substance: DOCETAXEL
     Dosage: 141 MG, Q3W
     Route: 042
     Dates: start: 20150403, end: 20150403
  15. FLONASE [Concomitant]
     Active Substance: FLUTICASONE PROPIONATE
  16. UREACIN [Concomitant]
  17. DECADRON [Concomitant]
     Active Substance: DEXAMETHASONE
  18. TAXOTERE [Suspect]
     Active Substance: DOCETAXEL
     Indication: BREAST CANCER FEMALE
     Dosage: 141 MG, Q3W
     Route: 042
     Dates: start: 20141205, end: 20141205
  19. NORCO [Concomitant]
     Active Substance: ACETAMINOPHEN\HYDROCODONE BITARTRATE

REACTIONS (6)
  - Anxiety [Unknown]
  - Alopecia [Not Recovered/Not Resolved]
  - Impaired quality of life [Unknown]
  - Psychological trauma [Unknown]
  - Pain [Unknown]
  - Emotional distress [Unknown]
